FAERS Safety Report 17365268 (Version 4)
Quarter: 2020Q2

REPORT INFORMATION
  Report Type: Spontaneous
  Country: US (occurrence: US)
  Receive Date: 20200204
  Receipt Date: 20200402
  Transmission Date: 20200713
  Serious: Yes (Hospitalization, Other)
  Sender: FDA-Public Use
  Company Number: US-AMGEN-USASP2020016802

PATIENT
  Age: 71 Year
  Sex: Female

DRUGS (1)
  1. PROLIA [Suspect]
     Active Substance: DENOSUMAB
     Indication: OSTEOPOROSIS POSTMENOPAUSAL
     Dosage: 60 MILLIGRAM, Q6MO
     Route: 065
     Dates: start: 2019

REACTIONS (12)
  - Coordination abnormal [Unknown]
  - Tension headache [Unknown]
  - Infection [Unknown]
  - Insomnia [Unknown]
  - Flatulence [Unknown]
  - Arthropathy [Recovered/Resolved]
  - Dizziness [Unknown]
  - Weight decreased [Unknown]
  - Hypertension [Unknown]
  - Chills [Unknown]
  - Blood pressure fluctuation [Unknown]
  - Decreased appetite [Unknown]

NARRATIVE: CASE EVENT DATE: 2019
